FAERS Safety Report 4351894-X (Version None)
Quarter: 2004Q2

REPORT INFORMATION
  Report Type: 
  Country: None (occurrence: None)
  Receive Date: 20040503
  Receipt Date: 20040407
  Transmission Date: 20050107
  Serious: Yes (Hospitalization)
  Sender: FDA-Public Use
  Company Number: PHFR2004GB01730

PATIENT
  Age: 57 Year
  Sex: Male

DRUGS (2)
  1. CLOZARIL [Suspect]
     Indication: SCHIZOPHRENIA
     Route: 048
     Dates: start: 19940506
  2. AMITRIPTYLINE HCL [Concomitant]
     Dosage: 50MG/DAY

REACTIONS (2)
  - CIRCULATORY COLLAPSE [None]
  - DUODENAL ULCER [None]
